FAERS Safety Report 24285037 (Version 2)
Quarter: 2024Q4

REPORT INFORMATION
  Report Type: Spontaneous
  Country: AU (occurrence: AU)
  Receive Date: 20240905
  Receipt Date: 20241025
  Transmission Date: 20250114
  Serious: Yes (Death, Other)
  Sender: AMGEN
  Company Number: AU-AMGEN-AUSSP2024174863

PATIENT
  Age: 66 Year
  Sex: Female

DRUGS (1)
  1. XGEVA [Suspect]
     Active Substance: DENOSUMAB
     Indication: Product used for unknown indication
     Dosage: 120 MILLIGRAM, Q2WK
     Route: 058

REACTIONS (2)
  - Death [Fatal]
  - Neuroendocrine carcinoma metastatic [Unknown]

NARRATIVE: CASE EVENT DATE: 20240829
